FAERS Safety Report 16885156 (Version 2)
Quarter: 2019Q4

REPORT INFORMATION
  Report Type: Spontaneous
  Country: US (occurrence: US)
  Receive Date: 20191004
  Receipt Date: 20191010
  Transmission Date: 20200122
  Serious: No
  Sender: FDA-Public Use
  Company Number: US-PFIZER INC-2019397740

PATIENT
  Age: 72 Year
  Sex: Female
  Weight: 77 kg

DRUGS (3)
  1. ELIQUIS [Interacting]
     Active Substance: APIXABAN
     Dosage: UNK
     Route: 065
  2. DILANTIN [Interacting]
     Active Substance: PHENYTOIN
     Indication: GENERALISED TONIC-CLONIC SEIZURE
     Dosage: 100 MILLIGRAM, IN THE EVENING
     Route: 048
  3. DILANTIN [Suspect]
     Active Substance: PHENYTOIN
     Indication: PETIT MAL EPILEPSY
     Dosage: 100 MILLIGRAM, 2X/DAY (MORNING AND NIGHT)
     Route: 048

REACTIONS (1)
  - Drug interaction [Unknown]
